FAERS Safety Report 5663266-6 (Version None)
Quarter: 2008Q1

REPORT INFORMATION
  Report Type: 
  Country: None (occurrence: None)
  Receive Date: 20080313
  Receipt Date: 20080312
  Transmission Date: 20080703
  Serious: Yes (Other)
  Sender: FDA-Public Use
  Company Number: A0714897A

PATIENT
  Age: 67 Year
  Sex: Female
  Weight: 78.6 kg

DRUGS (8)
  1. ALLI [Suspect]
     Dates: start: 20070701
  2. ARIMIDEX [Concomitant]
  3. LEVOTHYROXINE SODIUM [Concomitant]
  4. EFFEXOR [Concomitant]
  5. DIOVAN [Concomitant]
  6. VICODIN [Concomitant]
  7. IBUPROFEN [Concomitant]
  8. ANACIN [Concomitant]

REACTIONS (4)
  - ABDOMINAL PAIN UPPER [None]
  - ANAL HAEMORRHAGE [None]
  - DIARRHOEA [None]
  - RECTAL HAEMORRHAGE [None]
